FAERS Safety Report 7731140-7 (Version None)
Quarter: 2011Q3

REPORT INFORMATION
  Report Type: 
  Country: None (occurrence: None)
  Receive Date: 20110906
  Receipt Date: 20110906
  Transmission Date: 20111222
  Serious: Yes (Other)
  Sender: FDA-Public Use
  Company Number: None

PATIENT
  Age: 56 Year

DRUGS (2)
  1. WELLBUTRIN [Concomitant]
  2. CYMBALTA [Suspect]
     Indication: MAJOR DEPRESSION
     Dosage: 1
     Route: 048

REACTIONS (11)
  - DIZZINESS [None]
  - PARAESTHESIA [None]
  - DISTURBANCE IN ATTENTION [None]
  - ACTIVITIES OF DAILY LIVING IMPAIRED [None]
  - FEAR [None]
  - MALAISE [None]
  - ANXIETY [None]
  - PRODUCT QUALITY ISSUE [None]
  - DRUG WITHDRAWAL SYNDROME [None]
  - NAUSEA [None]
  - IMPAIRED DRIVING ABILITY [None]
